FAERS Safety Report 7022252-4 (Version None)
Quarter: 2010Q3

REPORT INFORMATION
  Report Type: 
  Country: None (occurrence: None)
  Receive Date: 20100924
  Receipt Date: 20100916
  Transmission Date: 20110219
  Serious: Yes (Death, Other)
  Sender: FDA-Public Use
  Company Number: 011129

PATIENT

DRUGS (9)
  1. BUSULFEX [Suspect]
     Indication: BONE MARROW CONDITIONING REGIMEN
     Dosage: 4 MG/KG,
  2. CYCLOPHOSPHAMIDE [Concomitant]
  3. AMIKACIN [Concomitant]
  4. CEPHALOSPORIN C (CEPHALOSPORIN C) [Concomitant]
  5. VANCOMYCIN [Concomitant]
  6. AMPHOTERICIN B [Concomitant]
  7. CYCLOSPORINE [Concomitant]
  8. METHOTREXATE [Concomitant]
  9. PREDNISONE [Concomitant]

REACTIONS (10)
  - ACUTE GRAFT VERSUS HOST DISEASE IN INTESTINE [None]
  - BONE MARROW TOXICITY [None]
  - GLOMERULONEPHRITIS [None]
  - HAEMOLYTIC URAEMIC SYNDROME [None]
  - HYPOVOLAEMIA [None]
  - NEPHROPATHY TOXIC [None]
  - RENAL ISCHAEMIA [None]
  - RENAL TUBULAR NECROSIS [None]
  - SEPSIS [None]
  - VENOOCCLUSIVE LIVER DISEASE [None]
